FAERS Safety Report 5559953-0 (Version None)
Quarter: 2007Q4

REPORT INFORMATION
  Report Type: 
  Country: None (occurrence: None)
  Receive Date: 20071214
  Receipt Date: 20071022
  Transmission Date: 20080405
  Serious: No
  Sender: FDA-Public Use
  Company Number: US-ABBOTT-07P-163-0421932-00

PATIENT
  Sex: Male
  Weight: 111 kg

DRUGS (4)
  1. HUMIRA [Suspect]
     Indication: CROHN'S DISEASE
     Route: 058
     Dates: start: 20070701
  2. PAROXETINE [Suspect]
     Indication: DEPRESSION
     Route: 048
     Dates: end: 20071023
  3. PAROXETINE [Suspect]
     Route: 048
     Dates: start: 20071023
  4. MESALAMINE [Concomitant]
     Indication: CROHN'S DISEASE
     Route: 048

REACTIONS (2)
  - SOMNOLENCE [None]
  - WEIGHT INCREASED [None]
